FAERS Safety Report 8078602-3 (Version None)
Quarter: 2012Q1

REPORT INFORMATION
  Report Type: 
  Country: None (occurrence: None)
  Receive Date: 20120124
  Receipt Date: 20120104
  Transmission Date: 20120608
  Serious: Yes (Hospitalization)
  Sender: FDA-Public Use
  Company Number: 20120003

PATIENT
  Age: 87 Year
  Sex: Male
  Weight: 65 kg

DRUGS (10)
  1. PLAGREL (CLOPIDOGREL) [Concomitant]
  2. CARVEDILOL [Concomitant]
  3. FUROSEMIDE [Concomitant]
  4. VITAMIN B12 [Concomitant]
  5. VENOFER [Suspect]
     Indication: MINERAL SUPPLEMENTATION
     Dosage: 100 MG/250 ML SALINE, INTRAVENOUS DRIP
     Route: 041
     Dates: start: 20110823
  6. VENOFER [Suspect]
     Indication: HAEMORRHAGE
     Dosage: 100 MG/250 ML SALINE, INTRAVENOUS DRIP
     Route: 041
     Dates: start: 20110823
  7. VENOFER [Suspect]
     Indication: HAEMORRHAGE
     Dosage: 2 AMPS/250 ML SALINE, INTRAVENOUS DRIP
     Route: 041
     Dates: start: 20110824, end: 20110827
  8. VENOFER [Suspect]
     Indication: MINERAL SUPPLEMENTATION
     Dosage: 2 AMPS/250 ML SALINE, INTRAVENOUS DRIP
     Route: 041
     Dates: start: 20110824, end: 20110827
  9. FOLINIC (FOLINIC  ACID) [Concomitant]
  10. MONOCORDIL (ISOSORBIDE MONONITRATE) [Concomitant]

REACTIONS (5)
  - INCORRECT DRUG ADMINISTRATION DURATION [None]
  - SWELLING [None]
  - HAEMATOCHEZIA [None]
  - WRONG TECHNIQUE IN DRUG USAGE PROCESS [None]
  - CHEST PAIN [None]
